FAERS Safety Report 24962134 (Version 1)
Quarter: 2025Q1

REPORT INFORMATION
  Report Type: Spontaneous
  Country: CN (occurrence: CN)
  Receive Date: 20250212
  Receipt Date: 20250212
  Transmission Date: 20250409
  Serious: Yes (Life-Threatening)
  Sender: ELI LILLY AND COMPANY
  Company Number: CN-MLMSERVICE-20250130-PI384659-00165-1

PATIENT
  Age: 68 Year
  Sex: Female
  Weight: 72.5 kg

DRUGS (3)
  1. GEMCITABINE HYDROCHLORIDE [Suspect]
     Active Substance: GEMCITABINE HYDROCHLORIDE
     Indication: Transitional cell cancer of the renal pelvis and ureter
     Route: 065
     Dates: start: 2023, end: 20231107
  2. CISPLATIN [Suspect]
     Active Substance: CISPLATIN
     Indication: Transitional cell cancer of the renal pelvis and ureter
     Route: 065
     Dates: start: 2023, end: 20231107
  3. TISLELIZUMAB [Suspect]
     Active Substance: TISLELIZUMAB
     Indication: Transitional cell cancer of the renal pelvis and ureter
     Route: 065
     Dates: start: 2023, end: 20231107

REACTIONS (1)
  - Renal salt-wasting syndrome [Recovered/Resolved]

NARRATIVE: CASE EVENT DATE: 20231115
